FAERS Safety Report 15744377 (Version 3)
Quarter: 2021Q3

REPORT INFORMATION
  Report Type: Spontaneous
  Country: CA (occurrence: CA)
  Receive Date: 20181220
  Receipt Date: 20210923
  Transmission Date: 20211014
  Serious: Yes (Other)
  Sender: FDA-Public Use
  Company Number: CA-BAYER-2018-236762

PATIENT
  Age: 37 Year
  Sex: Male

DRUGS (3)
  1. AMOXI?CLAV [Concomitant]
     Active Substance: AMOXICILLIN\CLAVULANATE POTASSIUM
     Indication: ANORECTAL DISCOMFORT
     Dosage: UNK
  2. CIPRO [Suspect]
     Active Substance: CIPROFLOXACIN HYDROCHLORIDE
     Indication: ANORECTAL DISCOMFORT
     Dosage: UNK
     Route: 065
  3. METRONIDAZOLE. [Suspect]
     Active Substance: METRONIDAZOLE
     Indication: ANORECTAL DISCOMFORT
     Dosage: UNK
     Route: 065

REACTIONS (7)
  - Condition aggravated [Unknown]
  - Anal inflammation [Unknown]
  - Aphthous ulcer [Unknown]
  - Anal abscess [Unknown]
  - Rectal haemorrhage [Unknown]
  - Drug hypersensitivity [Unknown]
  - Drug ineffective [Unknown]
